FAERS Safety Report 11007232 (Version 2)
Quarter: 2015Q2

REPORT INFORMATION
  Report Type: Spontaneous
  Country: US (occurrence: US)
  Receive Date: 20150409
  Receipt Date: 20150525
  Transmission Date: 20150821
  Serious: No
  Sender: FDA-Public Use
  Company Number: US-JNJFOC-20130807736

PATIENT
  Sex: Female
  Weight: 87.09 kg

DRUGS (2)
  1. REMICADE [Suspect]
     Active Substance: INFLIXIMAB
     Indication: ANKYLOSING SPONDYLITIS
     Dosage: STARTED IN 2002 OR 2003
     Route: 042
  2. DURAGESIC RESERVOIR [Concomitant]
     Indication: PAIN
     Route: 062
     Dates: start: 2003

REACTIONS (2)
  - Drug ineffective [Unknown]
  - Breakthrough pain [Unknown]
